FAERS Safety Report 9663701 (Version 2)
Quarter: 2013Q4

REPORT INFORMATION
  Report Type: Report from Study
  Country: US (occurrence: US)
  Receive Date: 20131101
  Receipt Date: 20131108
  Transmission Date: 20140711
  Serious: Yes (Death)
  Sender: FDA-Public Use
  Company Number: PHEH2013US022886

PATIENT
  Sex: Female

DRUGS (2)
  1. AFINITOR [Suspect]
     Indication: BREAST CANCER RECURRENT
     Dosage: 10 MG, QD
     Route: 048
  2. ENOXAPARIN [Concomitant]

REACTIONS (1)
  - Death [Fatal]
